FAERS Safety Report 6758385-7 (Version None)
Quarter: 2010Q2

REPORT INFORMATION
  Report Type: 
  Country: None (occurrence: None)
  Receive Date: 20100524
  Receipt Date: 20100330
  Transmission Date: 20101027
  Serious: No
  Sender: FDA-Public Use
  Company Number: 009544

PATIENT
  Sex: Male
  Weight: 59.4 kg

DRUGS (3)
  1. CIMZIA [Suspect]
     Indication: CROHN'S DISEASE
     Dosage: 400 MG, SUBCUTANEOUS
     Route: 058
     Dates: start: 20091001
  2. PREDNISONE [Concomitant]
  3. ASACOL [Concomitant]

REACTIONS (1)
  - RASH MACULAR [None]
